FAERS Safety Report 17115532 (Version 1)
Quarter: 2019Q4

REPORT INFORMATION
  Report Type: Spontaneous
  Country: DE (occurrence: DE)
  Receive Date: 20191205
  Receipt Date: 20191205
  Transmission Date: 20200122
  Serious: Yes (Death, Other)
  Sender: FDA-Public Use
  Company Number: DE-TEVA-2019-DE-1146938

PATIENT
  Age: 69 Year
  Sex: Female

DRUGS (7)
  1. MYCOPHENOLATE MOFETIL. [Suspect]
     Active Substance: MYCOPHENOLATE MOFETIL
     Indication: IMMUNOSUPPRESSANT DRUG THERAPY
     Dosage: INITIAL DOSAGE NOT STATED, HOWEVER, SHE HAD BEEN RECEIVING ORAL MYCOPHENOLATE MOFETIL AT 1000 MG/...
     Route: 048
  2. TACROLIMUS. [Suspect]
     Active Substance: TACROLIMUS
     Indication: IMMUNOSUPPRESSANT DRUG THERAPY
     Dosage: INITIAL DOSAGE NOT STATED; HOWEVER, SHE HAD BEEN RECEIVING ORAL MYCOPHENOLATE MOFETIL AT 1.5 MG/...
     Route: 048
  3. IMMUNE GLOBULIN (IMMUNOGLOBULINS NOS) [Suspect]
     Active Substance: IMMUNE GLOBULIN NOS
     Indication: IMMUNOSUPPRESSANT DRUG THERAPY
     Dosage: TWO CYCLES OF INTRAVENOUS IMMUNOGLOBULINS (60G IN TOTAL) WAS ADMINISTERED
     Route: 042
  4. RITUXIMAB. [Suspect]
     Active Substance: RITUXIMAB
     Indication: IMMUNOSUPPRESSANT DRUG THERAPY
     Dosage: TWO APPLICATIONS OF RITUXIMAB 2 X 1000MG WITHIN 14 DAYS; SHE WAS LATER READMITTED FOR ANOTHER COU...
     Route: 065
  5. METHYLPREDNISOLONE. [Suspect]
     Active Substance: METHYLPREDNISOLONE
     Indication: IMMUNOSUPPRESSANT DRUG THERAPY
     Dosage: 1 G DAILY FOR 5 DAYS, FOLLOWED BY SECOND COURSE OF 1 G DAILY FOR 5 DAYS
     Route: 042
  6. HYDROCORTISONE. [Suspect]
     Active Substance: HYDROCORTISONE
     Indication: IMMUNOSUPPRESSANT DRUG THERAPY
     Route: 042
  7. CYCLOPHOSPHAMIDE. [Suspect]
     Active Substance: CYCLOPHOSPHAMIDE
     Indication: IMMUNOSUPPRESSANT DRUG THERAPY
     Dosage: SHE WAS LATER READMITTED FOR ANOTHER COURSE OF CYCLOPHOSPHAMIDE
     Route: 065

REACTIONS (9)
  - Central nervous system viral infection [Unknown]
  - Epilepsy [Not Recovered/Not Resolved]
  - Encephalitis autoimmune [Unknown]
  - Apallic syndrome [Recovered/Resolved]
  - Cachexia [Not Recovered/Not Resolved]
  - Sepsis [Fatal]
  - Altered state of consciousness [Recovered/Resolved]
  - Epstein-Barr virus infection [Unknown]
  - Gait inability [Not Recovered/Not Resolved]
